FAERS Safety Report 25368605 (Version 2)
Quarter: 2025Q2

REPORT INFORMATION
  Report Type: Spontaneous
  Country: JP (occurrence: JP)
  Receive Date: 20250528
  Receipt Date: 20250602
  Transmission Date: 20250716
  Serious: Yes (Other)
  Sender: OTSUKA
  Company Number: JP-MMM-Otsuka-F859HV2W

PATIENT
  Age: 8 Decade
  Sex: Male

DRUGS (2)
  1. REXULTI [Suspect]
     Active Substance: BREXPIPRAZOLE
     Indication: Dementia Alzheimer^s type
     Route: 048
  2. REXULTI [Suspect]
     Active Substance: BREXPIPRAZOLE
     Route: 048

REACTIONS (1)
  - Drug-induced liver injury [Recovering/Resolving]
